APPROVED DRUG PRODUCT: SULINDAC
Active Ingredient: SULINDAC
Strength: 150MG
Dosage Form/Route: TABLET;ORAL
Application: A072712 | Product #001
Applicant: CHARTWELL RX SCIENCES LLC
Approved: Aug 30, 1991 | RLD: No | RS: No | Type: DISCN